FAERS Safety Report 18594107 (Version 1)
Quarter: 2020Q4

REPORT INFORMATION
  Report Type: Spontaneous
  Country: GB (occurrence: GB)
  Receive Date: 20201209
  Receipt Date: 20201209
  Transmission Date: 20210114
  Serious: Yes (Other)
  Sender: FDA-Public Use
  Company Number: GB-TEVA-2020-GB-1855472

PATIENT
  Age: 73 Year
  Sex: Male
  Weight: 74 kg

DRUGS (20)
  1. VISCOTEARS [Concomitant]
     Active Substance: CARBOMER
     Dosage: 1 GTT
     Dates: start: 20180409
  2. VENTOLIN [Concomitant]
     Active Substance: ALBUTEROL SULFATE
     Dosage: 2 DF
     Route: 055
     Dates: start: 20190305
  3. IVABRADINE [Concomitant]
     Active Substance: IVABRADINE
     Dosage: 2 DF
     Dates: start: 20191121
  4. QVAR [Concomitant]
     Active Substance: BECLOMETHASONE DIPROPIONATE
     Dosage: 2 DF
     Route: 055
     Dates: start: 20190528
  5. CLOPIDOGREL [Concomitant]
     Active Substance: CLOPIDOGREL BISULFATE
     Dosage: 1 DF
     Dates: start: 20180409
  6. BENZYDAMINE HYDROCHLORIDE [Concomitant]
     Active Substance: BENZYDAMINE HYDROCHLORIDE
     Indication: ORAL PAIN
     Dosage: 1 DF
     Dates: start: 20180511
  7. ATORVASTATIN [Concomitant]
     Active Substance: ATORVASTATIN
     Dosage: 1 DF
     Dates: start: 20191022
  8. BETNOVATE [Concomitant]
     Active Substance: BETAMETHASONE
     Dosage: 2 DF AS DIRECTED. APPLY THINLY
     Dates: start: 20200914, end: 20201012
  9. LANSOPRAZOLE. [Concomitant]
     Active Substance: LANSOPRAZOLE
     Dosage: 1 DF
     Dates: start: 20191121
  10. GLYCERYL TRINITRATE [Concomitant]
     Active Substance: NITROGLYCERIN
     Dosage: SPRAY ONE OR TWO DOSES UNDER TONGUE AND THEN CL...
     Route: 060
     Dates: start: 20180421
  11. HYDROCORTISONE. [Concomitant]
     Active Substance: HYDROCORTISONE
     Dosage: APPLY 2 DF
     Dates: start: 20201026, end: 20201102
  12. RANOLAZINE. [Concomitant]
     Active Substance: RANOLAZINE
     Dosage: 2 DF
     Dates: start: 20190510
  13. VIAZEM XL [Concomitant]
     Active Substance: DILTIAZEM HYDROCHLORIDE
     Dosage: 1 DF
     Dates: start: 20191022
  14. NITROFURANTOIN. [Suspect]
     Active Substance: NITROFURANTOIN
     Dosage: MODIFIED RELEASE 200 MG
     Dates: start: 20201110
  15. FOLIC ACID. [Concomitant]
     Active Substance: FOLIC ACID
     Dosage: 1 DF
     Dates: start: 20180409
  16. ISOSORBIDE MONONITRATE. [Concomitant]
     Active Substance: ISOSORBIDE MONONITRATE
     Dosage: 2 DF
     Dates: start: 20190510
  17. TERBINAFINE. [Concomitant]
     Active Substance: TERBINAFINE
     Dosage: 2 DF AS DIRECTED. APPLY THINLY
     Dates: start: 20200914, end: 20201012
  18. HYDROXOCOBALAMIN [Concomitant]
     Active Substance: HYDROXOCOBALAMIN
     Dosage: 3 DF
     Dates: start: 20180421
  19. FERROUS SULFATE. [Concomitant]
     Active Substance: FERROUS SULFATE
     Dosage: 3 DF
     Dates: start: 20180409
  20. MESALAZINE [Concomitant]
     Active Substance: MESALAMINE
     Dosage: 4 DF
     Dates: start: 20180731

REACTIONS (2)
  - Chest discomfort [Recovered/Resolved]
  - Dizziness [Recovered/Resolved]

NARRATIVE: CASE EVENT DATE: 20201112
